FAERS Safety Report 8152445 (Version 2)
Quarter: 2013Q2

REPORT INFORMATION
  Report Type: Spontaneous
  Country: US (occurrence: US)
  Receive Date: 20110922
  Receipt Date: 20130524
  Transmission Date: 20140414
  Serious: No
  Sender: FDA-Public Use
  Company Number: US-ASTRAZENECA-2010SE41711

PATIENT
  Age: 59 Year
  Sex: Female
  Weight: 66.7 kg

DRUGS (11)
  1. SEROQUEL [Suspect]
     Indication: MOOD SWINGS
     Route: 048
     Dates: start: 201001, end: 201010
  2. SEROQUEL [Suspect]
     Indication: SLEEP DISORDER
     Route: 048
     Dates: start: 201001, end: 201010
  3. CRESTOR [Suspect]
     Dosage: AFTER LUNCH
     Route: 048
  4. CRESTOR [Suspect]
     Dosage: AT NIGHT
     Route: 048
  5. ZOLOFT [Concomitant]
  6. ZOLOFT [Concomitant]
  7. NEURONTIN [Concomitant]
  8. KLONOPIN [Concomitant]
  9. SYNTHROID [Concomitant]
  10. THYROID MEDICATION [Concomitant]
     Indication: THYROID DISORDER
  11. CLONAZEPAM [Concomitant]

REACTIONS (9)
  - Feeling cold [Unknown]
  - Night sweats [Unknown]
  - Bone pain [Unknown]
  - Insomnia [Unknown]
  - Headache [Unknown]
  - Nausea [Unknown]
  - Somnolence [Unknown]
  - Fatigue [Unknown]
  - Drug ineffective [Unknown]
